FAERS Safety Report 9349178 (Version 2)
Quarter: 2013Q2

REPORT INFORMATION
  Report Type: Spontaneous
  Country: JP (occurrence: JP)
  Receive Date: 20130614
  Receipt Date: 20130626
  Transmission Date: 20140414
  Serious: Yes (Other)
  Sender: FDA-Public Use
  Company Number: JP-JHP PHARMACEUTICALS, LLC-JHP201300353

PATIENT
  Age: 36 Year
  Sex: Female

DRUGS (7)
  1. APLISOL [Suspect]
     Indication: TUBERCULIN TEST
     Route: 023
  2. NSAID^S [Suspect]
  3. ORAL CONTRACEPTIVES [Concomitant]
  4. NEUROTROPIN [Concomitant]
  5. ANTIDEPRESSANTS [Concomitant]
  6. THYROID HORMONES REPLACEMENT [Concomitant]
  7. VITAMINS [Concomitant]

REACTIONS (2)
  - Anaphylactic reaction [Recovered/Resolved]
  - Pyrexia [Recovered/Resolved]
